FAERS Safety Report 9611987 (Version 1)
Quarter: 2013Q4

REPORT INFORMATION
  Report Type: Report from Study
  Country: MX (occurrence: MX)
  Receive Date: 20131010
  Receipt Date: 20131010
  Transmission Date: 20140711
  Serious: Yes (Other)
  Sender: FDA-Public Use
  Company Number: MX-SA-2013SA098659

PATIENT
  Age: 53 Year
  Sex: Female
  Weight: 55 kg

DRUGS (5)
  1. LANTUS [Suspect]
     Indication: TYPE 2 DIABETES MELLITUS
     Dosage: DOSE: 40 IU IN THE MORNING ANG 20 IU AT NIGHT
     Route: 058
     Dates: start: 2011, end: 201308
  2. URSODEOXYCHOLIC ACID [Concomitant]
     Indication: BILIARY CIRRHOSIS PRIMARY
     Route: 048
     Dates: start: 2012
  3. ALL OTHER THERAPEUTIC PRODUCTS [Concomitant]
     Indication: FLUID RETENTION
     Route: 048
     Dates: start: 2012
  4. TECTA [Concomitant]
     Indication: GASTRITIS
     Route: 048
  5. ALL OTHER THERAPEUTIC PRODUCTS [Concomitant]
     Indication: GASTROOESOPHAGEAL REFLUX DISEASE
     Route: 048

REACTIONS (4)
  - Biliary cirrhosis primary [Not Recovered/Not Resolved]
  - Fluid retention [Not Recovered/Not Resolved]
  - Hyperglycaemia [Recovered/Resolved]
  - Drug administration error [Unknown]
